FAERS Safety Report 17436434 (Version 1)
Quarter: 2020Q1

REPORT INFORMATION
  Report Type: Spontaneous
  Country: US (occurrence: US)
  Receive Date: 20200219
  Receipt Date: 20200219
  Transmission Date: 20200409
  Serious: Yes (Other)
  Sender: FDA-Public Use
  Company Number: US-LANTHEUS-LMI-2019-00519

PATIENT
  Age: 68 Year
  Sex: Male
  Weight: 125 kg

DRUGS (1)
  1. DEFINITY [Suspect]
     Active Substance: PERFLUTREN
     Indication: ECHOCARDIOGRAM
     Dosage: 5 MILLILITER, (1.3 ML DEFINITY PREPARED IN 8.7 ML DILUENT)
     Route: 040
     Dates: start: 20190729, end: 20190729

REACTIONS (5)
  - Blood glucose increased [Recovering/Resolving]
  - Flank pain [Recovering/Resolving]
  - Blood pressure increased [Recovering/Resolving]
  - Unresponsive to stimuli [Recovered/Resolved]
  - Chest pain [Recovering/Resolving]

NARRATIVE: CASE EVENT DATE: 20190729
